FAERS Safety Report 8191344-9 (Version None)
Quarter: 2012Q1

REPORT INFORMATION
  Report Type: 
  Country: None (occurrence: None)
  Receive Date: 20120307
  Receipt Date: 20120224
  Transmission Date: 20120608
  Serious: Yes (Other)
  Sender: FDA-Public Use
  Company Number: TR-ELI_LILLY_AND_COMPANY-TR201202007526

PATIENT
  Sex: Female

DRUGS (2)
  1. HUMATROPE [Suspect]
     Dosage: 1.15 MG, QD
     Route: 058
     Dates: end: 20110101
  2. HUMATROPE [Suspect]
     Dosage: 0.9 MG, QD
     Route: 058
     Dates: start: 20091006

REACTIONS (1)
  - OSTEOCHONDROSIS [None]
